FAERS Safety Report 8643047 (Version 2)
Quarter: 2012Q4

REPORT INFORMATION
  Report Type: 
  Country: CO (occurrence: CO)
  Receive Date: 20120629
  Receipt Date: 20120907
  Transmission Date: 20130627
  Serious: Yes (Hospitalization, Other)
  Sender: FDA-Public Use
  Company Number: CO-PFIZER INC-2012153574

PATIENT
  Age: 12 Year
  Sex: Male

DRUGS (2)
  1. GENOTROPIN [Suspect]
     Indication: BODY HEIGHT BELOW NORMAL
     Dosage: UNK
     Dates: start: 201008, end: 201010
  2. LEVOTHYROXINE [Concomitant]
     Indication: HORMONE LEVEL ABNORMAL
     Dosage: UNK
     Dates: start: 201010

REACTIONS (1)
  - Craniopharyngioma [Not Recovered/Not Resolved]
